FAERS Safety Report 23823207 (Version 1)
Quarter: 2024Q2

REPORT INFORMATION
  Report Type: Report from Study
  Country: US (occurrence: US)
  Receive Date: 20240507
  Receipt Date: 20240507
  Transmission Date: 20240716
  Serious: Yes (Other)
  Sender: FDA-Public Use
  Company Number: US-ABBVIE-5742332

PATIENT
  Sex: Female

DRUGS (3)
  1. SKYRIZI [Suspect]
     Active Substance: RISANKIZUMAB-RZAA
     Indication: Psoriasis
     Route: 058
  2. SKYRIZI [Suspect]
     Active Substance: RISANKIZUMAB-RZAA
     Indication: Psoriatic arthropathy
  3. UPADACITINIB [Suspect]
     Active Substance: UPADACITINIB
     Indication: Psoriatic arthropathy
     Dosage: END DATE APR 2024
     Route: 058
     Dates: start: 20240410

REACTIONS (12)
  - Heart valve incompetence [Unknown]
  - Rash macular [Unknown]
  - Swelling of eyelid [Unknown]
  - Unevaluable event [Unknown]
  - Cardiac ventricular thrombosis [Unknown]
  - Skin exfoliation [Unknown]
  - Condition aggravated [Unknown]
  - Erythema [Unknown]
  - Skin burning sensation [Unknown]
  - Skin disorder [Unknown]
  - Pruritus [Unknown]
  - Skin haemorrhage [Unknown]
